FAERS Safety Report 5904243-7 (Version None)
Quarter: 2008Q3

REPORT INFORMATION
  Report Type: 
  Country: None (occurrence: None)
  Receive Date: 20080909
  Receipt Date: 20080513
  Transmission Date: 20090109
  Serious: Yes (Death)
  Sender: FDA-Public Use
  Company Number: 163-20785-08031336

PATIENT
  Age: 62 Year
  Sex: Male

DRUGS (7)
  1. THALOMID [Suspect]
     Indication: MULTIPLE MYELOMA
     Dosage: 200 MG, QHS, ORAL ; 200 MG, 1 IN 1 D, ORAL
     Route: 048
     Dates: start: 20080220, end: 20080311
  2. THALOMID [Suspect]
     Indication: MULTIPLE MYELOMA
     Dosage: 200 MG, QHS, ORAL ; 200 MG, 1 IN 1 D, ORAL
     Route: 048
     Dates: start: 20080319
  3. FUROSEMIDE [Suspect]
     Indication: DRUG USE FOR UNKNOWN INDICATION
     Dosage: 40 MG, DAILY
     Dates: end: 20080311
  4. DEXAMETHASONE TAB [Concomitant]
  5. ASPIRIN [Concomitant]
  6. TORSEMIDE [Concomitant]
  7. MORPHINE [Concomitant]

REACTIONS (3)
  - CARDIAC FAILURE CONGESTIVE [None]
  - RASH ERYTHEMATOUS [None]
  - RASH MACULO-PAPULAR [None]
